FAERS Safety Report 8251532-X (Version None)
Quarter: 2012Q2

REPORT INFORMATION
  Report Type: 
  Country: None (occurrence: None)
  Receive Date: 20120402
  Receipt Date: 20120323
  Transmission Date: 20120825
  Serious: Yes (Other)
  Sender: FDA-Public Use
  Company Number: US-BAYER-2012-020051

PATIENT
  Age: 40 Year
  Sex: Female
  Weight: 110 kg

DRUGS (12)
  1. YASMIN [Suspect]
     Indication: PREMENSTRUAL SYNDROME
  2. YASMIN [Suspect]
     Indication: MENORRHAGIA
  3. IMITREX [Concomitant]
     Dosage: 50 MG, PRN (1 TAB)
  4. VITAMIN B COMPLEX CAP [Concomitant]
     Route: 048
  5. CLARITIN [Concomitant]
     Dosage: 10 MG, UNK
     Route: 048
  6. MULTI-VITAMINS [Concomitant]
     Dosage: UNK UNK, QD
     Route: 048
  7. CETIRIZINE HYDROCHLORIDE [Concomitant]
     Dosage: 10 MG, QD
     Route: 048
  8. IBUPROFEN (ADVIL) [Concomitant]
  9. MOTRIN [Concomitant]
  10. YASMIN [Suspect]
     Indication: CONTRACEPTION
     Dosage: UNK
     Dates: start: 20091101, end: 20110301
  11. NAPROXEN (ALEVE) [Concomitant]
     Route: 048
  12. IRON-COMBINATIONS [Concomitant]
     Route: 048

REACTIONS (1)
  - DEEP VEIN THROMBOSIS [None]
